FAERS Safety Report 20964175 (Version 1)
Quarter: 2022Q2

REPORT INFORMATION
  Report Type: Spontaneous
  Country: US (occurrence: None)
  Receive Date: 20220615
  Receipt Date: 20220615
  Transmission Date: 20220721
  Serious: No
  Sender: FDA-Public Use
  Company Number: 2022A187123

PATIENT
  Age: 692 Month
  Sex: Female
  Weight: 71.7 kg

DRUGS (2)
  1. BUDESONIDE\FORMOTEROL\GLYCOPYRRONIUM [Suspect]
     Active Substance: BUDESONIDE\FORMOTEROL\GLYCOPYRRONIUM
     Indication: Asthma
     Dosage: 160MCG/9MCG/4.8MCG BREZTRI INHALER 2 PUFFS TWICE DAILY
     Route: 055
  2. BUDESONIDE\FORMOTEROL\GLYCOPYRRONIUM [Suspect]
     Active Substance: BUDESONIDE\FORMOTEROL\GLYCOPYRRONIUM
     Indication: Bronchiectasis
     Dosage: 160MCG/9MCG/4.8MCG BREZTRI INHALER 2 PUFFS TWICE DAILY
     Route: 055

REACTIONS (7)
  - Productive cough [Unknown]
  - Wheezing [Unknown]
  - Bronchitis [Unknown]
  - Wrong technique in product usage process [Unknown]
  - Device use error [Unknown]
  - Device malfunction [Unknown]
  - Product use issue [Unknown]

NARRATIVE: CASE EVENT DATE: 20220501
